FAERS Safety Report 9776856 (Version 1)
Quarter: 2013Q4

REPORT INFORMATION
  Report Type: Report from Study
  Country: AR (occurrence: AR)
  Receive Date: 20131221
  Receipt Date: 20131221
  Transmission Date: 20140711
  Serious: Yes (Death, Other)
  Sender: FDA-Public Use
  Company Number: PHHY2013AR149155

PATIENT
  Sex: Female

DRUGS (1)
  1. EXELON PATCH [Suspect]
     Indication: DEMENTIA ALZHEIMER^S TYPE
     Dosage: 9.5 MG, UNK
     Route: 062
     Dates: start: 201108, end: 2011

REACTIONS (4)
  - Respiratory arrest [Fatal]
  - Urinary tract infection [Unknown]
  - Dementia Alzheimer^s type [Unknown]
  - Application site irritation [Recovered/Resolved]
